FAERS Safety Report 11968861 (Version 1)
Quarter: 2016Q1

REPORT INFORMATION
  Report Type: Spontaneous
  Country: US (occurrence: US)
  Receive Date: 20160128
  Receipt Date: 20160128
  Transmission Date: 20160526
  Serious: Yes (Other)
  Sender: FDA-Public Use
  Company Number: US-CIPLA LTD.-2016US00631

PATIENT

DRUGS (6)
  1. OXALIPLATIN. [Suspect]
     Active Substance: OXALIPLATIN
     Indication: COLON CANCER STAGE II
     Dosage: 3 CYCLES OF FOLFOXIRI
     Route: 065
  2. IRINOTECAN [Suspect]
     Active Substance: IRINOTECAN
     Indication: COLON CANCER STAGE II
     Dosage: 3 CYCLES OF FOLFOXIRI
     Route: 065
  3. IRINOTECAN [Suspect]
     Active Substance: IRINOTECAN
     Dosage: A 30 MINUTE INTRAVENOUS INFUSION EVERY TWO WEEKS
     Route: 042
  4. FLOXURIDINE. [Suspect]
     Active Substance: FLOXURIDINE
     Indication: COLON CANCER STAGE II
     Dosage: INFUSED VIA HEPATIC ARTERY OVER 2 WEEKS
     Route: 042
  5. FLUOROURACIL. [Suspect]
     Active Substance: FLUOROURACIL
     Indication: COLON CANCER STAGE II
     Dosage: 3 CYCLES OF FOLFOXIRI
     Route: 065
  6. FOLINIC ACID [Suspect]
     Active Substance: LEUCOVORIN
     Indication: COLON CANCER STAGE II
     Dosage: 3 CYCLES OF FOLFOXIRI
     Route: 065

REACTIONS (2)
  - Hepatic steatosis [Unknown]
  - Alanine aminotransferase increased [Unknown]
